FAERS Safety Report 18158057 (Version 1)
Quarter: 2020Q3

REPORT INFORMATION
  Report Type: Spontaneous
  Country: US (occurrence: US)
  Receive Date: 20200817
  Receipt Date: 20200817
  Transmission Date: 20201103
  Serious: No
  Sender: FDA-Public Use
  Company Number: US-MEDEXUS PHARMA, INC.-2020MED00120

PATIENT
  Age: 12 Year
  Sex: Female

DRUGS (1)
  1. RASUVO [Suspect]
     Active Substance: METHOTREXATE SODIUM
     Dosage: 17.5 MG, INJECTED INTO THE ABDOMEN
     Dates: start: 2019

REACTIONS (4)
  - Mood altered [Not Recovered/Not Resolved]
  - Injection site erythema [Recovered/Resolved]
  - Device failure [Not Recovered/Not Resolved]
  - Injection site bruising [Recovered/Resolved]

NARRATIVE: CASE EVENT DATE: 20200429
